FAERS Safety Report 12972223 (Version 1)
Quarter: 2016Q4

REPORT INFORMATION
  Report Type: Spontaneous
  Country: AU (occurrence: AU)
  Receive Date: 20161124
  Receipt Date: 20161124
  Transmission Date: 20170207
  Serious: Yes (Death, Hospitalization, Other)
  Sender: FDA-Public Use
  Company Number: AU-ORION CORPORATION ORION PHARMA-TREX2016-2335

PATIENT
  Age: 60 Year
  Sex: Female

DRUGS (3)
  1. PREDNISOLONE. [Concomitant]
     Active Substance: PREDNISOLONE
     Route: 065
  2. METHOTREXATE. [Suspect]
     Active Substance: METHOTREXATE
     Indication: RHEUMATOID ARTHRITIS
     Route: 065
     Dates: start: 198611, end: 1986
  3. METHOTREXATE. [Suspect]
     Active Substance: METHOTREXATE
     Dosage: WEEKLY 2.5 MG INCREMENTS TO 15 MG WEEKLY
     Route: 065

REACTIONS (7)
  - Vomiting [Unknown]
  - Pneumonitis [Recovered/Resolved]
  - Abdominal pain upper [Unknown]
  - Pancytopenia [Recovered/Resolved]
  - Mouth ulceration [Unknown]
  - Death [Fatal]
  - Acute kidney injury [Unknown]
